FAERS Safety Report 7073962-4 (Version None)
Quarter: 2010Q4

REPORT INFORMATION
  Report Type: 
  Country: None (occurrence: None)
  Receive Date: 20101029
  Receipt Date: 20101019
  Transmission Date: 20110411
  Serious: Yes (Hospitalization)
  Sender: FDA-Public Use
  Company Number: US-JNJFOC-20101006741

PATIENT
  Age: 57 Year
  Sex: Male

DRUGS (3)
  1. ACETAMINOPHEN/DIPHENHYDRAMINE [Suspect]
     Indication: PRODUCT USED FOR UNKNOWN INDICATION
     Route: 048
  2. ARSENIC [Suspect]
     Indication: PRODUCT USED FOR UNKNOWN INDICATION
  3. MELATONIN [Suspect]
     Indication: PRODUCT USED FOR UNKNOWN INDICATION

REACTIONS (6)
  - HYPERTENSION [None]
  - INCORRECT DOSE ADMINISTERED [None]
  - INTENTIONAL SELF-INJURY [None]
  - NAUSEA [None]
  - SINUS TACHYCARDIA [None]
  - WHITE BLOOD CELL COUNT INCREASED [None]
